FAERS Safety Report 4627299-0 (Version None)
Quarter: 2005Q2

REPORT INFORMATION
  Report Type: 
  Country: None (occurrence: None)
  Receive Date: 20050405
  Receipt Date: 20040823
  Transmission Date: 20051028
  Serious: Yes (Hospitalization)
  Sender: FDA-Public Use
  Company Number: GB-2004-BP-07133BP

PATIENT
  Sex: Male
  Weight: 84 kg

DRUGS (9)
  1. MICARDIS [Suspect]
     Indication: CARDIOVASCULAR DISORDER
     Route: 048
     Dates: start: 20030219, end: 20040520
  2. MICARDIS [Suspect]
     Indication: CEREBROVASCULAR ACCIDENT PROPHYLAXIS
  3. RAMIPRIL [Suspect]
     Indication: CARDIOVASCULAR DISORDER
     Route: 048
     Dates: start: 20030219, end: 20040520
  4. RAMIPRIL [Suspect]
     Indication: CEREBROVASCULAR ACCIDENT PROPHYLAXIS
  5. SIMVASTATIN [Concomitant]
  6. MONOMAX XL [Concomitant]
  7. THYROXINE [Concomitant]
  8. ASPIRIN [Concomitant]
  9. BISOPROLOL FUMARATE [Concomitant]

REACTIONS (1)
  - RENAL FAILURE ACUTE [None]
